FAERS Safety Report 25395817 (Version 3)
Quarter: 2025Q2

REPORT INFORMATION
  Report Type: Spontaneous
  Country: JP (occurrence: JP)
  Receive Date: 20250604
  Receipt Date: 20250627
  Transmission Date: 20250717
  Serious: Yes (Death, Other)
  Sender: ABBVIE
  Company Number: JP-GSKJP-JP2025066219AA

PATIENT
  Age: 86 Year
  Sex: Female
  Weight: 54 kg

DRUGS (1)
  1. BOTOX [Suspect]
     Active Substance: ONABOTULINUMTOXINA
     Indication: Muscle spasms
     Route: 042
     Dates: start: 20241127, end: 20241127

REACTIONS (5)
  - Multiple organ dysfunction syndrome [Fatal]
  - Biliary tract infection [Fatal]
  - Hepatic function abnormal [Fatal]
  - Cholelithiasis [Unknown]
  - Cholecystitis [Fatal]

NARRATIVE: CASE EVENT DATE: 20250409
